FAERS Safety Report 6161679-X (Version None)
Quarter: 2009Q2

REPORT INFORMATION
  Report Type: 
  Country: None (occurrence: None)
  Receive Date: 20090417
  Receipt Date: 20090409
  Transmission Date: 20091009
  Serious: Yes (Life-Threatening)
  Sender: FDA-Public Use
  Company Number: 2009-1

PATIENT
  Age: 79 Year
  Sex: Male
  Weight: 75 kg

DRUGS (12)
  1. PHENYLEPHRINE HCL 50MG/5ML, PARENTA PHARMACEUTICALS [Suspect]
     Indication: HYPOTENSION
     Dosage: 240MG/1000ML, IV
     Route: 042
     Dates: start: 20090408, end: 20090408
  2. TYLENOL [Concomitant]
  3. COMBIVENT [Concomitant]
  4. ESOMEPRAZOLE [Concomitant]
  5. FENTANYL [Concomitant]
  6. FLUCONAZOLE [Concomitant]
  7. LASIX [Concomitant]
  8. HEPARIN [Concomitant]
  9. MIDAZOLAM HCL [Concomitant]
  10. ZOSYN [Concomitant]
  11. SENNA [Concomitant]
  12. DOCUSATE [Concomitant]

REACTIONS (2)
  - DRUG INEFFECTIVE [None]
  - HYPOTENSION [None]
